FAERS Safety Report 9511184 (Version 1)
Quarter: 2013Q3

REPORT INFORMATION
  Report Type: Spontaneous
  Country: US (occurrence: None)
  Receive Date: 20130909
  Receipt Date: 20130909
  Transmission Date: 20140515
  Serious: Yes (Other)
  Sender: FDA-Public Use
  Company Number: None

PATIENT
  Age: 34 Year
  Sex: Male
  Weight: 65.77 kg

DRUGS (1)
  1. BUDEPRION XL 150MG TEVA [Suspect]
     Route: 048
     Dates: start: 20130101, end: 20130630

REACTIONS (3)
  - Somnolence [None]
  - Depression [None]
  - Product substitution issue [None]
